FAERS Safety Report 7626073-0 (Version None)
Quarter: 2011Q3

REPORT INFORMATION
  Report Type: 
  Country: None (occurrence: None)
  Receive Date: 20110701
  Receipt Date: 20100528
  Transmission Date: 20111222
  Serious: Yes (Other)
  Sender: FDA-Public Use
  Company Number: 7006515

PATIENT
  Age: 41 Year
  Sex: Female
  Weight: 83 kg

DRUGS (3)
  1. LISINOPRIL [Concomitant]
  2. REBIF [Suspect]
     Indication: MULTIPLE SCLEROSIS
     Dosage: 44 MCG, 3 IN 1 WK, SUBCUTANEOUS
     Route: 058
     Dates: start: 20100219
  3. KEPPRA [Concomitant]

REACTIONS (3)
  - INJECTION SITE ERYTHEMA [None]
  - CONVULSION [None]
  - INJECTION SITE HAEMATOMA [None]
